FAERS Safety Report 11660635 (Version 1)
Quarter: 2015Q4

REPORT INFORMATION
  Report Type: Spontaneous
  Country: US (occurrence: US)
  Receive Date: 20151026
  Receipt Date: 20151026
  Transmission Date: 20160304
  Serious: No
  Sender: FDA-Public Use
  Company Number: US-MEDA-2011050074

PATIENT
  Age: 76 Year
  Sex: Female

DRUGS (10)
  1. SPIRIVA [Suspect]
     Active Substance: TIOTROPIUM BROMIDE MONOHYDRATE
  2. ADVAIR HFA [Suspect]
     Active Substance: FLUTICASONE PROPIONATE\SALMETEROL XINAFOATE
  3. BROVANA [Suspect]
     Active Substance: ARFORMOTEROL TARTRATE
  4. OTHER ANTI-ASTHMATICS, INHALANTS [Concomitant]
  5. ASTEPRO [Suspect]
     Active Substance: AZELASTINE HYDROCHLORIDE
     Route: 048
  6. SALBUTAMOL [Suspect]
     Active Substance: ALBUTEROL
  7. ALLEGRA ALLERGY [Suspect]
     Active Substance: FEXOFENADINE HYDROCHLORIDE
     Indication: HYPERSENSITIVITY
     Route: 048
     Dates: start: 201104
  8. BUDESONIDE. [Suspect]
     Active Substance: BUDESONIDE
  9. IPRATROPIUM [Suspect]
     Active Substance: IPRATROPIUM
  10. NASONEX [Suspect]
     Active Substance: MOMETASONE FUROATE

REACTIONS (4)
  - Dyspepsia [Unknown]
  - Heart rate increased [Unknown]
  - Blood pressure increased [Unknown]
  - Chest pain [Unknown]

NARRATIVE: CASE EVENT DATE: 201104
